FAERS Safety Report 25457339 (Version 1)
Quarter: 2025Q2

REPORT INFORMATION
  Report Type: Spontaneous
  Country: CN (occurrence: CN)
  Receive Date: 20250619
  Receipt Date: 20250619
  Transmission Date: 20250717
  Serious: Yes (Hospitalization)
  Sender: ELI LILLY AND COMPANY
  Company Number: CN-Merck Healthcare KGaA-2025029542

PATIENT
  Age: 61 Year
  Sex: Male
  Weight: 42 kg

DRUGS (7)
  1. ERBITUX [Suspect]
     Active Substance: CETUXIMAB
     Indication: Squamous cell carcinoma of the oral cavity
     Route: 041
     Dates: start: 20250516, end: 20250516
  2. ERBITUX [Suspect]
     Active Substance: CETUXIMAB
     Route: 041
     Dates: start: 20250523, end: 20250523
  3. DOCETAXEL [Suspect]
     Active Substance: DOCETAXEL
     Indication: Squamous cell carcinoma of the oral cavity
     Dosage: 80 MG, DAILY
     Route: 041
     Dates: start: 20250517, end: 20250517
  4. CAPECITABINE [Suspect]
     Active Substance: CAPECITABINE
     Indication: Squamous cell carcinoma of the oral cavity
     Dosage: 1 G, BID
     Route: 048
     Dates: start: 20250517, end: 20250527
  5. SODIUM CHLORIDE [Concomitant]
     Active Substance: SODIUM CHLORIDE
     Indication: Medication dilution
     Dosage: 200 ML, DAILY
     Route: 041
     Dates: start: 20250517, end: 20250517
  6. SODIUM CHLORIDE [Concomitant]
     Active Substance: SODIUM CHLORIDE
     Dosage: 350 ML, DAILY
     Route: 041
     Dates: start: 20250523, end: 20250523
  7. SODIUM CHLORIDE [Concomitant]
     Active Substance: SODIUM CHLORIDE
     Dosage: 350 ML, DAILY
     Route: 041
     Dates: start: 20250516, end: 20250516

REACTIONS (1)
  - Myelosuppression [Recovering/Resolving]

NARRATIVE: CASE EVENT DATE: 20250527
